FAERS Safety Report 17771373 (Version 1)
Quarter: 2020Q2

REPORT INFORMATION
  Report Type: Spontaneous
  Country: FR (occurrence: FR)
  Receive Date: 20200512
  Receipt Date: 20200512
  Transmission Date: 20200714
  Serious: Yes (Hospitalization)
  Sender: FDA-Public Use
  Company Number: FR-MYLANLABS-2020M1045768

PATIENT
  Age: 41 Year
  Sex: Female

DRUGS (1)
  1. IBUPROFEN. [Suspect]
     Active Substance: IBUPROFEN
     Indication: ABDOMINAL PAIN UPPER
     Dosage: NOT SPECIFIED
     Route: 048
     Dates: start: 20170529, end: 20170531

REACTIONS (1)
  - Liver abscess [Recovered/Resolved with Sequelae]

NARRATIVE: CASE EVENT DATE: 201706
